FAERS Safety Report 13475382 (Version 4)
Quarter: 2017Q2

REPORT INFORMATION
  Report Type: Report from Study
  Country: US (occurrence: US)
  Receive Date: 20170424
  Receipt Date: 20170602
  Transmission Date: 20170830
  Serious: Yes (Death, Hospitalization)
  Sender: FDA-Public Use
  Company Number: US-ACTELION-A-US2017-152865

PATIENT
  Age: 61 Year
  Sex: Female
  Weight: 59.86 kg

DRUGS (4)
  1. VELETRI [Suspect]
     Active Substance: EPOPROSTENOL
     Indication: PULMONARY HYPERTENSION
     Dosage: 12 NG/KG, PER MIN
     Route: 042
  2. ADEMPAS [Concomitant]
     Active Substance: RIOCIGUAT
  3. TYVASO [Suspect]
     Active Substance: TREPROSTINIL
     Indication: PULMONARY HYPERTENSION
     Dosage: 18-54 MCG, QID
     Route: 055
     Dates: start: 20160923
  4. VELETRI [Suspect]
     Active Substance: EPOPROSTENOL
     Dosage: 11 NG/KG, PER MIN
     Route: 042

REACTIONS (18)
  - Device dislocation [Unknown]
  - Catheter site pain [Unknown]
  - Pyrexia [Unknown]
  - Blister [Unknown]
  - Diarrhoea [Unknown]
  - Vomiting [Unknown]
  - Hypotension [Unknown]
  - Rash generalised [Unknown]
  - Catheter site erythema [Unknown]
  - Dyspnoea [Unknown]
  - Asthenia [Unknown]
  - Catheter site rash [Unknown]
  - Death [Fatal]
  - Catheter management [Unknown]
  - Rash pruritic [Unknown]
  - Skin discolouration [Unknown]
  - Feeling abnormal [Unknown]
  - Device related infection [Unknown]

NARRATIVE: CASE EVENT DATE: 20170327
